FAERS Safety Report 23560242 (Version 1)
Quarter: 2024Q1

REPORT INFORMATION
  Report Type: Report from Study
  Country: US (occurrence: US)
  Receive Date: 20240223
  Receipt Date: 20240223
  Transmission Date: 20240410
  Serious: Yes (Other)
  Sender: FDA-Public Use
  Company Number: US-JAZZ-2022-US-001959

PATIENT
  Sex: Female

DRUGS (21)
  1. XYREM [Suspect]
     Active Substance: SODIUM OXYBATE
     Indication: Obstructive sleep apnoea syndrome
     Dosage: 3.25 GRAM, BID
  2. XYREM [Suspect]
     Active Substance: SODIUM OXYBATE
     Indication: Fibromyalgia
     Dosage: 4.5 GRAM, BID
  3. CODEINE [Suspect]
     Active Substance: CODEINE
     Indication: Product used for unknown indication
  4. CALCIUM LACTATE [Concomitant]
     Active Substance: CALCIUM LACTATE
     Dosage: 0000
     Dates: start: 20010101
  5. IBUPROFEN [Concomitant]
     Active Substance: IBUPROFEN
     Dosage: 0020
     Dates: start: 20151110
  6. STRATTERA [Concomitant]
     Active Substance: ATOMOXETINE HYDROCHLORIDE
     Dosage: 0010
     Dates: start: 20010101
  7. BIO B COMPLEX [Concomitant]
     Dosage: 0010
     Dates: start: 20151110
  8. BIO-D-MULSION [Concomitant]
     Dosage: 0000
     Dates: start: 20151110
  9. LEVOTHYROXINE [Concomitant]
     Active Substance: LEVOTHYROXINE\LEVOTHYROXINE SODIUM
     Dosage: 75 MCG
     Dates: start: 20190101
  10. LEVOTHYROXINE [Concomitant]
     Active Substance: LEVOTHYROXINE\LEVOTHYROXINE SODIUM
     Dosage: 100 MCG
     Dates: start: 20190101
  11. PRISTIQ EXTENDED-RELEASE [Concomitant]
     Active Substance: DESVENLAFAXINE SUCCINATE
     Dosage: UNK
     Dates: start: 20151110
  12. ZADITOR [Concomitant]
     Active Substance: KETOTIFEN FUMARATE
     Indication: Hypersensitivity
     Dosage: UNK
     Dates: start: 20151110
  13. MINERALS\VITAMINS [Concomitant]
     Active Substance: MINERALS\VITAMINS
     Dosage: 0010
     Dates: start: 20010101
  14. OSTEO BI-FLEX EASE [Concomitant]
     Dosage: 0020
     Dates: start: 20010101
  15. ZOMIG [Concomitant]
     Active Substance: ZOLMITRIPTAN
     Indication: Migraine
     Dosage: 0010
     Dates: start: 20151110
  16. ALLERGY + HAYFEVER RELIEF [Concomitant]
     Dosage: 0000
     Dates: start: 20010101
  17. HALOBETASOL [Concomitant]
     Active Substance: HALOBETASOL
     Dosage: 0010
     Dates: start: 20151011
  18. BLACK CURRANT [Concomitant]
     Active Substance: BLACK CURRANT
     Dosage: 0020
     Dates: start: 20151110
  19. MOMETASONE [Concomitant]
     Active Substance: MOMETASONE
     Dosage: 0010
     Dates: start: 20151110
  20. ALCOHOL [Concomitant]
     Active Substance: ALCOHOL
     Dosage: UNK
     Dates: start: 20151112
  21. LOSARTAN POTASSIUM [Concomitant]
     Active Substance: LOSARTAN POTASSIUM
     Indication: Product used for unknown indication
     Dosage: UNK
     Dates: start: 20240201

REACTIONS (6)
  - Surgery [Unknown]
  - COVID-19 [Unknown]
  - Drug hypersensitivity [Unknown]
  - Asthma [Not Recovered/Not Resolved]
  - Off label use [Unknown]
  - Product administration interrupted [Unknown]

NARRATIVE: CASE EVENT DATE: 20230101
